FAERS Safety Report 12677424 (Version 6)
Quarter: 2017Q1

REPORT INFORMATION
  Report Type: Report from Study
  Country: ES (occurrence: ES)
  Receive Date: 20160823
  Receipt Date: 20170224
  Transmission Date: 20170428
  Serious: Yes (Hospitalization)
  Sender: FDA-Public Use
  Company Number: PHHO2016ES004182

PATIENT
  Age: 62 Year
  Sex: Female
  Weight: 72 kg

DRUGS (7)
  1. BLINDED LCZ696 [Suspect]
     Active Substance: SACUBITRIL
     Indication: CARDIAC FAILURE CHRONIC
     Dosage: CODE NOT BROKEN
     Route: 048
     Dates: start: 20151014
  2. BLINDED NO TREATMENT RECEIVED [Suspect]
     Active Substance: INVESTIGATIONAL PRODUCT
     Indication: CARDIAC FAILURE CHRONIC
     Dosage: CODE NOT BROKEN
     Route: 048
     Dates: start: 20151014
  3. DIGOXINA [Suspect]
     Active Substance: DIGOXIN
     Dosage: 0.25 MG, QD
     Route: 048
     Dates: start: 20170207
  4. DIOVAN [Suspect]
     Active Substance: VALSARTAN
     Indication: CARDIAC FAILURE CHRONIC
     Dosage: CODE NOT BROKEN
     Route: 048
     Dates: start: 20151014
  5. BISOPROLOL [Suspect]
     Active Substance: BISOPROLOL
     Dosage: 5 MG, BID
     Route: 048
     Dates: start: 20170120
  6. BISOPROLOL [Suspect]
     Active Substance: BISOPROLOL
     Indication: ATRIAL FIBRILLATION
     Dosage: 2.5 MG, BID
     Route: 048
     Dates: start: 20160118, end: 20160801
  7. DIGOXINA [Suspect]
     Active Substance: DIGOXIN
     Indication: ATRIAL FIBRILLATION
     Dosage: 0.25 MG, QD
     Route: 048
     Dates: start: 20160404, end: 20160801

REACTIONS (5)
  - Respiratory tract infection [Recovered/Resolved]
  - Atrial flutter [Recovered/Resolved]
  - Atrial flutter [Recovered/Resolved]
  - Atrial fibrillation [Recovered/Resolved]
  - Atrial fibrillation [Recovered/Resolved]

NARRATIVE: CASE EVENT DATE: 20151211
